FAERS Safety Report 8530569-7 (Version None)
Quarter: 2012Q3

REPORT INFORMATION
  Report Type: 
  Country: None (occurrence: None)
  Receive Date: 20120723
  Receipt Date: 20120716
  Transmission Date: 20120928
  Serious: Yes (Hospitalization)
  Sender: FDA-Public Use
  Company Number: HU-AMGEN-HUNSP2012044079

PATIENT
  Age: 70 Year
  Sex: Female

DRUGS (4)
  1. METHOTREXATE [Suspect]
     Indication: RHEUMATOID ARTHRITIS
     Dosage: 10 MG, QD
     Dates: start: 20100101
  2. PROLIA [Suspect]
     Indication: OSTEOPOROSIS POSTMENOPAUSAL
     Dosage: 60 MG, Q6MO
     Route: 058
     Dates: start: 20111201, end: 20111201
  3. ACTEMRA [Suspect]
     Indication: RHEUMATOID ARTHRITIS
     Dosage: UNK UNK, QMO
     Dates: start: 20100201
  4. METHYLPREDNISOLONE [Suspect]
     Indication: RHEUMATOID ARTHRITIS
     Dosage: 6 MG, QD
     Dates: start: 20080101

REACTIONS (1)
  - ARTHRITIS INFECTIVE [None]
